FAERS Safety Report 11638224 (Version 1)
Quarter: 2015Q4

REPORT INFORMATION
  Report Type: Spontaneous
  Country: US (occurrence: US)
  Receive Date: 20151016
  Receipt Date: 20151016
  Transmission Date: 20160304
  Serious: No
  Sender: FDA-Public Use
  Company Number: US-INDIVIOR-RB-72181-2014

PATIENT
  Sex: Female

DRUGS (12)
  1. B COMPLEX                          /00322001/ [Concomitant]
     Indication: HAIR DISORDER
     Dosage: UNK
     Route: 065
  2. SUBUTEX [Suspect]
     Active Substance: BUPRENORPHINE HYDROCHLORIDE
     Dosage: 1 MG, QD
     Route: 065
  3. 5 HTP                              /00439301/ [Concomitant]
     Active Substance: OXITRIPTAN
     Indication: SLEEP DISORDER
     Dosage: UNK
     Route: 065
  4. MELATONIN [Concomitant]
     Active Substance: MELATONIN
     Indication: INSOMNIA
     Dosage: UNK
     Route: 065
  5. SUBOXONE [Suspect]
     Active Substance: BUPRENORPHINE HYDROCHLORIDE\NALOXONE HYDROCHLORIDE
     Indication: PRODUCT USED FOR UNKNOWN INDICATION
     Dosage: UNK
     Route: 065
  6. L TYROSINE [Concomitant]
     Indication: NAIL DISORDER
  7. B COMPLEX                          /00322001/ [Concomitant]
     Indication: NAIL DISORDER
  8. SUBUTEX [Suspect]
     Active Substance: BUPRENORPHINE HYDROCHLORIDE
     Dosage: UNK, WENT DOWN 2 MG PER WEEK.
     Route: 065
  9. FISH OIL [Concomitant]
     Active Substance: FISH OIL
     Indication: SLEEP DISORDER
     Dosage: UNK
     Route: 065
  10. SUBUTEX [Suspect]
     Active Substance: BUPRENORPHINE HYDROCHLORIDE
     Indication: DRUG WITHDRAWAL SYNDROME
     Dosage: STAYED ON BUPRENORPHINE FOR OVER 10 YEARS.
     Route: 065
     Dates: start: 2003
  11. SUBUTEX [Suspect]
     Active Substance: BUPRENORPHINE HYDROCHLORIDE
     Dosage: 4 MG PER DAY
     Route: 065
  12. L TYROSINE [Concomitant]
     Indication: HAIR DISORDER
     Dosage: UNK
     Route: 065

REACTIONS (18)
  - Food craving [Unknown]
  - Anger [Unknown]
  - Muscle spasms [Unknown]
  - Emotional disorder [Unknown]
  - Abdominal pain upper [Unknown]
  - Insomnia [Unknown]
  - Somnolence [Unknown]
  - Tooth disorder [Unknown]
  - Feeling abnormal [Unknown]
  - Underdose [Unknown]
  - Drug dependence [Unknown]
  - Product preparation error [Not Recovered/Not Resolved]
  - Decreased appetite [Unknown]
  - Anxiety [Unknown]
  - Grief reaction [Unknown]
  - Nervousness [Unknown]
  - Drug withdrawal syndrome [Unknown]
  - Weight increased [Recovering/Resolving]
